FAERS Safety Report 15234817 (Version 1)
Quarter: 2018Q3

REPORT INFORMATION
  Report Type: Spontaneous
  Country: TH (occurrence: TH)
  Receive Date: 20180803
  Receipt Date: 20180803
  Transmission Date: 20181010
  Serious: Yes (Death, Other)
  Sender: FDA-Public Use
  Company Number: TH-ALVOGEN-2018-ALVOGEN-096951

PATIENT
  Age: 60 Year
  Sex: Female

DRUGS (4)
  1. COLCHICINE. [Suspect]
     Active Substance: COLCHICINE
     Indication: RAYNAUD^S PHENOMENON
  2. NAPROXEN. [Suspect]
     Active Substance: NAPROXEN
     Indication: RAYNAUD^S PHENOMENON
  3. NIFEDIPINE. [Suspect]
     Active Substance: NIFEDIPINE
     Indication: RAYNAUD^S PHENOMENON
  4. ACETYLSALICYLIC ACID [Suspect]
     Active Substance: ASPIRIN
     Indication: RAYNAUD^S PHENOMENON

REACTIONS (4)
  - Multiple organ dysfunction syndrome [Fatal]
  - Cutaneous lupus erythematosus [Fatal]
  - Sepsis [Fatal]
  - Systemic lupus erythematosus [Fatal]
